FAERS Safety Report 5772586-6 (Version None)
Quarter: 2008Q2

REPORT INFORMATION
  Report Type: 
  Country: None (occurrence: None)
  Receive Date: 20080613
  Receipt Date: 20080609
  Transmission Date: 20081010
  Serious: Yes (Other)
  Sender: FDA-Public Use
  Company Number: US-ABBOTT-08P-163-0453477-00

PATIENT
  Sex: Female
  Weight: 84.444 kg

DRUGS (3)
  1. HUMIRA [Suspect]
     Indication: PSORIASIS
     Route: 058
     Dates: start: 20070901, end: 20071001
  2. HUMIRA [Suspect]
     Indication: PSORIATIC ARTHROPATHY
     Dates: start: 20071101
  3. OTC WATER PILL [Concomitant]
     Indication: DRUG USE FOR UNKNOWN INDICATION

REACTIONS (4)
  - ENDOMETRIOSIS [None]
  - OVARIAN CYST [None]
  - UTERINE LEIOMYOMA [None]
  - WEIGHT INCREASED [None]
